FAERS Safety Report 5291866-4 (Version None)
Quarter: 2007Q2

REPORT INFORMATION
  Report Type: 
  Country: None (occurrence: None)
  Receive Date: 20070406
  Receipt Date: 20070406
  Transmission Date: 20071010
  Serious: Yes (Hospitalization)
  Sender: FDA-Public Use
  Company Number: None

PATIENT
  Age: 85 Year
  Sex: Male

DRUGS (3)
  1. METOPROLOL SUCCINATE [Suspect]
     Dosage: 25 MG  BID  PO
     Route: 048
  2. ISOSORBIDE DINITRATE [Suspect]
     Dosage: 60 MG  TID
  3. TERAZOSIN HCL [Suspect]
     Dosage: 4 MG PO QHS
     Route: 048

REACTIONS (2)
  - HYPOTENSION [None]
  - PRESYNCOPE [None]
